FAERS Safety Report 4546837-X (Version None)
Quarter: 2005Q1

REPORT INFORMATION
  Report Type: 
  Country: None (occurrence: None)
  Receive Date: 20050105
  Receipt Date: 20041217
  Transmission Date: 20050727
  Serious: Yes (Death, Hospitalization)
  Sender: FDA-Public Use
  Company Number: EWC041241810

PATIENT
  Age: 63 Year
  Sex: Male
  Weight: 60 kg

DRUGS (2)
  1. GEMCITABINE HYDROCHLORIDE-IV (GEMCITABINE) [Suspect]
     Indication: NON-SMALL CELL LUNG CANCER STAGE IV
     Dosage: 1250 MG/M2 OTHER
     Route: 050
     Dates: start: 20041110
  2. CISPLATIN [Suspect]
     Indication: NON-SMALL CELL LUNG CANCER STAGE IV
     Dosage: 80 MG/M2 OTHER
     Route: 050
     Dates: start: 20041110

REACTIONS (10)
  - BACTERIAL INFECTION [None]
  - BLOOD UREA INCREASED [None]
  - BONE MARROW DEPRESSION [None]
  - EMPYEMA [None]
  - FEBRILE NEUTROPENIA [None]
  - PANCYTOPENIA [None]
  - PLEURAL EFFUSION [None]
  - PRODUCTIVE COUGH [None]
  - RESPIRATORY FAILURE [None]
  - SPUTUM CULTURE POSITIVE [None]
